FAERS Safety Report 12242798 (Version 2)
Quarter: 2016Q3

REPORT INFORMATION
  Report Type: Report from Study
  Country: ES (occurrence: ES)
  Receive Date: 20160406
  Receipt Date: 20160714
  Transmission Date: 20161109
  Serious: Yes (Hospitalization)
  Sender: FDA-Public Use
  Company Number: ES-ASTRAZENECA-2016SE01643

PATIENT
  Age: 18233 Day
  Sex: Female

DRUGS (2)
  1. OLAPARIB [Suspect]
     Active Substance: OLAPARIB
     Indication: OVARIAN EPITHELIAL CANCER
     Route: 048
     Dates: start: 20160201
  2. OLAPARIB [Suspect]
     Active Substance: OLAPARIB
     Indication: OVARIAN EPITHELIAL CANCER
     Route: 048
     Dates: start: 20151023, end: 20160102

REACTIONS (1)
  - Hypertrophic cardiomyopathy [Recovered/Resolved]

NARRATIVE: CASE EVENT DATE: 20160102
